FAERS Safety Report 18637470 (Version 1)
Quarter: 2020Q4

REPORT INFORMATION
  Report Type: Spontaneous
  Country: US (occurrence: US)
  Receive Date: 20201218
  Receipt Date: 20201218
  Transmission Date: 20210114
  Serious: No
  Sender: FDA-Public Use
  Company Number: US-PRINSTON PHARMACEUTICAL INC.-2020PRN00282

PATIENT
  Sex: Female

DRUGS (3)
  1. UNSPECIFIED OTHER MEDICATIONS [Suspect]
     Active Substance: UNSPECIFIED INGREDIENT
  2. MULTIVITAMIN [Concomitant]
     Active Substance: VITAMINS
  3. DOXYCYCLINE HYCLATE. [Suspect]
     Active Substance: DOXYCYCLINE HYCLATE
     Indication: ROSACEA
     Dosage: 50 MG, 1X/DAY
     Route: 048
     Dates: start: 2020, end: 202008

REACTIONS (3)
  - Arthralgia [Recovering/Resolving]
  - Off label use [Recovered/Resolved]
  - Urticaria [Recovering/Resolving]

NARRATIVE: CASE EVENT DATE: 2020
